FAERS Safety Report 25362821 (Version 3)
Quarter: 2025Q4

REPORT INFORMATION
  Report Type: Spontaneous
  Country: CA (occurrence: CA)
  Receive Date: 20250527
  Receipt Date: 20251124
  Transmission Date: 20260117
  Serious: Yes (Other)
  Sender: NOVARTIS
  Company Number: CA-SANDOZ-SDZ2024CA103218

PATIENT
  Age: 41 Year
  Sex: Female

DRUGS (6)
  1. ZOLEDRONIC ACID [Suspect]
     Active Substance: ZOLEDRONIC ACID
     Indication: Langerhans^ cell histiocytosis
     Dosage: 1 DOSAGE FORM, QMO, POST 13 CYCLES
     Route: 065
  2. INDOMETHACIN [Suspect]
     Active Substance: INDOMETHACIN
     Indication: Langerhans^ cell histiocytosis
     Dosage: UNK
     Route: 065
     Dates: start: 201807
  3. CYTARABINE [Suspect]
     Active Substance: CYTARABINE
     Indication: Langerhans^ cell histiocytosis
     Dosage: 100 MG, PER METER SQUARED FOR FIVE DAYS MONTHLY FOR 11 OF A PLANNED 12 (POWDER FOR SOLUTION)
     Route: 037
     Dates: end: 201804
  4. HYDROXYUREA [Suspect]
     Active Substance: HYDROXYUREA
     Indication: Langerhans^ cell histiocytosis
     Dosage: UNK
     Route: 065
     Dates: start: 201908, end: 20200429
  5. VEMURAFENIB [Suspect]
     Active Substance: VEMURAFENIB
     Indication: Langerhans^ cell histiocytosis
     Dosage: 960 MG, BID
     Route: 048
     Dates: start: 20201218
  6. VEMURAFENIB [Suspect]
     Active Substance: VEMURAFENIB
     Dosage: 240 MG, QD
     Route: 048
     Dates: end: 202105

REACTIONS (4)
  - Langerhans^ cell histiocytosis [Unknown]
  - Nausea [Unknown]
  - Vomiting [Unknown]
  - Off label use [Unknown]
